FAERS Safety Report 7585807-4 (Version None)
Quarter: 2011Q3

REPORT INFORMATION
  Report Type: 
  Country: None (occurrence: None)
  Receive Date: 20110701
  Receipt Date: 20110627
  Transmission Date: 20111222
  Serious: Yes (Hospitalization, Other)
  Sender: FDA-Public Use
  Company Number: FR-BRISTOL-MYERS SQUIBB COMPANY-15859531

PATIENT
  Age: 80 Year
  Sex: Male
  Weight: 85 kg

DRUGS (7)
  1. EUPRESSYL [Concomitant]
  2. CASODEX [Concomitant]
  3. PLAVIX [Concomitant]
  4. EZETIMIBE [Concomitant]
  5. BISOPROLOL [Concomitant]
  6. AMLODIPINE [Concomitant]
  7. IPILIMUMAB [Suspect]
     Indication: MALIGNANT MELANOMA
     Route: 042
     Dates: start: 20110609

REACTIONS (5)
  - RENAL FAILURE [None]
  - DIARRHOEA [None]
  - ASTHENIA [None]
  - DEHYDRATION [None]
  - ANAEMIA [None]
